FAERS Safety Report 24570287 (Version 1)
Quarter: 2024Q4

REPORT INFORMATION
  Report Type: Report from Study
  Country: US (occurrence: US)
  Receive Date: 20241031
  Receipt Date: 20241031
  Transmission Date: 20250114
  Serious: Yes (Death, Hospitalization)
  Sender: BAYER HEALTHCARE PHARMACEUTICALS INC.
  Company Number: US-BAYER-2024A142110

PATIENT
  Age: 80 Year
  Sex: Male

DRUGS (2)
  1. NUBEQA [Suspect]
     Active Substance: DAROLUTAMIDE
     Dosage: UNK
     Dates: start: 20240301, end: 20240917
  2. NUBEQA [Suspect]
     Active Substance: DAROLUTAMIDE
     Dosage: UNK
     Dates: end: 20241026

REACTIONS (2)
  - Death [Fatal]
  - Hospitalisation [None]

NARRATIVE: CASE EVENT DATE: 20241026
